FAERS Safety Report 16317749 (Version 1)
Quarter: 2019Q2

REPORT INFORMATION
  Report Type: Spontaneous
  Country: RO (occurrence: RO)
  Receive Date: 20190516
  Receipt Date: 20190516
  Transmission Date: 20190711
  Serious: Yes (Other)
  Sender: FDA-Public Use
  Company Number: RO-ROCHE-2006845

PATIENT
  Age: 62 Year
  Sex: Female

DRUGS (9)
  1. METHOTREXATE. [Concomitant]
     Active Substance: METHOTREXATE
     Indication: RHEUMATOID ARTHRITIS
     Route: 065
  2. TENOXICAM [Concomitant]
     Active Substance: TENOXICAM
  3. MABTHERA [Suspect]
     Active Substance: RITUXIMAB
     Indication: RHEUMATOID ARTHRITIS
     Route: 065
     Dates: start: 201306, end: 201608
  4. ALPHA D3 [Concomitant]
     Active Substance: ALFACALCIDOL
  5. ROACTEMRA [Suspect]
     Active Substance: TOCILIZUMAB
     Indication: RHEUMATOID ARTHRITIS
     Route: 042
     Dates: start: 201608
  6. LEFLUNOMIDE. [Suspect]
     Active Substance: LEFLUNOMIDE
     Indication: RHEUMATOID ARTHRITIS
     Route: 065
     Dates: start: 2017
  7. FOSAMAX [Concomitant]
     Active Substance: ALENDRONATE SODIUM
  8. MEDROL [Concomitant]
     Active Substance: METHYLPREDNISOLONE
  9. HYDROXYCHLOROQUINE [Concomitant]
     Active Substance: HYDROXYCHLOROQUINE
     Indication: RHEUMATOID ARTHRITIS
     Route: 065

REACTIONS (10)
  - Periodontitis [Recovered/Resolved]
  - Hepatocellular injury [Recovered/Resolved]
  - Haematuria [Unknown]
  - Arthralgia [Unknown]
  - Inflammation [Unknown]
  - Asymptomatic bacteriuria [Unknown]
  - Escherichia urinary tract infection [Unknown]
  - Leukocyturia [Unknown]
  - Urinary tract infection [Recovered/Resolved]
  - Proteinuria [Unknown]

NARRATIVE: CASE EVENT DATE: 201702
